FAERS Safety Report 17367916 (Version 1)
Quarter: 2020Q1

REPORT INFORMATION
  Report Type: Spontaneous
  Country: US (occurrence: US)
  Receive Date: 20200203
  Receipt Date: 20200203
  Transmission Date: 20200409
  Serious: Yes (Disabling)
  Sender: FDA-Public Use
  Company Number: None

PATIENT
  Age: 32 Year
  Sex: Female
  Weight: 74.25 kg

DRUGS (2)
  1. LETROZOLE. [Suspect]
     Active Substance: LETROZOLE
     Indication: ASSISTED FERTILISATION
     Dosage: ?          QUANTITY:1 TABLET(S);?
     Route: 048
     Dates: start: 20190927, end: 20191001
  2. PRENATALS [Concomitant]

REACTIONS (6)
  - Upper respiratory tract infection [None]
  - Herpes zoster [None]
  - Cellulitis [None]
  - Typical aura without headache [None]
  - Influenza [None]
  - Immunosuppression [None]
